FAERS Safety Report 9689469 (Version 2)
Quarter: 2013Q4

REPORT INFORMATION
  Report Type: Report from Study
  Country: JP (occurrence: JP)
  Receive Date: 20131114
  Receipt Date: 20131114
  Transmission Date: 20140711
  Serious: Yes (Hospitalization, Other)
  Sender: FDA-Public Use
  Company Number: JP-TAKEDA-TCI2013A06240

PATIENT
  Age: 73 Year
  Sex: Female
  Weight: 40 kg

DRUGS (7)
  1. LANSOPRAZOLE [Suspect]
     Indication: PROPHYLAXIS AGAINST GASTROINTESTINAL ULCER
     Dosage: 15 MG, QD
     Route: 048
     Dates: start: 20120809
  2. BAYASPIRIN [Concomitant]
     Indication: THROMBOSIS PROPHYLAXIS
     Dosage: 100 MG, 1 DAYS
     Route: 048
     Dates: end: 20130124
  3. BAYASPIRIN [Concomitant]
     Dosage: 100 MG, 1 DAYS
     Route: 048
     Dates: start: 20130227
  4. EXCEGRAN [Concomitant]
     Dosage: 100 MG, 1 DAY
     Route: 048
  5. EUGLUCON [Concomitant]
     Dosage: 2.5 MG, 1 DAYS
     Route: 048
  6. LIVALO [Concomitant]
     Dosage: 2 MG, 1 DAYS
     Route: 048
  7. GLUCOBAY [Concomitant]
     Dosage: 300 MG, 1 DAYS
     Route: 048

REACTIONS (2)
  - Colon cancer [Recovering/Resolving]
  - Condition aggravated [Recovering/Resolving]
